FAERS Safety Report 14557983 (Version 3)
Quarter: 2018Q1

REPORT INFORMATION
  Report Type: Spontaneous
  Country: ZA (occurrence: ZA)
  Receive Date: 20180221
  Receipt Date: 20180312
  Transmission Date: 20180509
  Serious: Yes (Hospitalization, Other)
  Sender: FDA-Public Use
  Company Number: ZA-PFIZER INC-2018071763

PATIENT
  Age: 78 Year
  Sex: Female
  Weight: 40 kg

DRUGS (6)
  1. TRUSTAN [Interacting]
     Active Substance: ESOMEPRAZOLE
     Dosage: 40 MG, UNK
  2. FOXAIR [Interacting]
     Active Substance: FLUTICASONE PROPIONATE\SALMETEROL XINAFOATE
     Dosage: 50/250 MCG
  3. ACLASTA [Interacting]
     Active Substance: ZOLEDRONIC ACID
     Dosage: 5 MG, UNK
  4. ELTROXIN [Interacting]
     Active Substance: LEVOTHYROXINE
     Dosage: 150 UG, UNK
  5. ASPAVOR [Suspect]
     Active Substance: ATORVASTATIN
     Dosage: 10 MG, UNK
     Dates: end: 201802
  6. METHOTREXATE. [Interacting]
     Active Substance: METHOTREXATE
     Dosage: 2.5 MG, UNK
     Dates: end: 201802

REACTIONS (6)
  - Weight decreased [Unknown]
  - Pain [Unknown]
  - Drug interaction [Unknown]
  - Tuberculosis [Not Recovered/Not Resolved]
  - Speech disorder [Unknown]
  - Peripheral swelling [Unknown]

NARRATIVE: CASE EVENT DATE: 20180304
